FAERS Safety Report 16883613 (Version 2)
Quarter: 2019Q4

REPORT INFORMATION
  Report Type: Spontaneous
  Country: ES (occurrence: ES)
  Receive Date: 20191004
  Receipt Date: 20191203
  Transmission Date: 20200122
  Serious: Yes (Other)
  Sender: FDA-Public Use
  Company Number: ES-ZYDUS-041384

PATIENT
  Age: 41 Year
  Sex: Male

DRUGS (22)
  1. ZOLMITRIPTAN. [Suspect]
     Active Substance: ZOLMITRIPTAN
     Indication: MIGRAINE
     Dosage: UNK ()
     Route: 065
  2. LISALGIL (METAMIZOLE SODIUM) [Suspect]
     Active Substance: METAMIZOLE SODIUM
  3. NOLOTIL (METAMIZOLE SODIUM) [Suspect]
     Active Substance: METAMIZOLE SODIUM
     Indication: MIGRAINE
     Dosage: UNK ()
     Route: 065
  4. AMITRIPTYLINE [Suspect]
     Active Substance: AMITRIPTYLINE
     Indication: PRODUCT USED FOR UNKNOWN INDICATION
     Dosage: 10 MG, QD
     Route: 065
     Dates: start: 201211
  5. BROMAZEPAM [Suspect]
     Active Substance: BROMAZEPAM
     Indication: MIGRAINE
     Dosage: 3 MG, UNK
     Route: 065
  6. PAROXETINE. [Suspect]
     Active Substance: PAROXETINE
     Indication: MIGRAINE
     Route: 065
  7. TOPIRAMATE. [Suspect]
     Active Substance: TOPIRAMATE
     Indication: MIGRAINE
     Route: 065
  8. XEOMIN [Suspect]
     Active Substance: INCOBOTULINUMTOXINA
     Indication: MIGRAINE
     Dosage: 150 IU, UNK
     Route: 065
     Dates: start: 20130307
  9. AMITRIPTYLINE [Suspect]
     Active Substance: AMITRIPTYLINE
     Indication: MIGRAINE
     Dosage: 1 DF, QD
     Route: 065
  10. TOPIRAMATE. [Suspect]
     Active Substance: TOPIRAMATE
     Indication: PRODUCT USED FOR UNKNOWN INDICATION
     Route: 065
     Dates: start: 201906
  11. VALPROIC ACID. [Suspect]
     Active Substance: VALPROIC ACID
     Indication: MIGRAINE
     Dosage: 500 MG, UNK
     Route: 065
     Dates: start: 201211
  12. ELETRIPTAN. [Suspect]
     Active Substance: ELETRIPTAN
     Indication: MIGRAINE
     Dosage: UNK ()
     Route: 065
  13. LAMOTRIGINE. [Suspect]
     Active Substance: LAMOTRIGINE
     Indication: MIGRAINE
     Route: 065
     Dates: start: 201110
  14. PREDNISONE/PREDNISONE ACETATE [Suspect]
     Active Substance: PREDNISONE ACETATE
     Indication: MIGRAINE
     Dosage: 60 MG, QD
     Route: 065
  15. RIZATRIPTAN. [Suspect]
     Active Substance: RIZATRIPTAN
     Indication: MIGRAINE
     Dosage: UNK ()
     Route: 065
  16. BOTULINUM TOXIN TYPE A [Suspect]
     Active Substance: BOTULINUM TOXIN TYPE A
     Indication: MIGRAINE
     Dosage: 100 IU, UNK
     Route: 065
     Dates: start: 201110
  17. BOTULINUM TOXIN TYPE A [Suspect]
     Active Substance: BOTULINUM TOXIN TYPE A
     Indication: PRODUCT USED FOR UNKNOWN INDICATION
     Dosage: 150 IU, UNK
     Route: 065
  18. DICLOFENAC [Suspect]
     Active Substance: DICLOFENAC
     Indication: MIGRAINE
     Dosage: UNK ()
     Route: 065
  19. AMITRIPTYLINE [Suspect]
     Active Substance: AMITRIPTYLINE
     Indication: MIGRAINE
     Dosage: 10 MG, QD
     Route: 065
     Dates: start: 201110
  20. CAFFEINE/ERGOTAMINE TARTRATE/PARACETAMOL [Suspect]
     Active Substance: ACETAMINOPHEN\CAFFEINE\ERGOTAMINE TARTRATE
     Indication: MIGRAINE
     Dosage: UNK ()
     Route: 065
  21. FLUNARIZINE [Suspect]
     Active Substance: FLUNARIZINE
     Indication: MIGRAINE
     Dosage: 5 MG, UNK
     Route: 065
  22. IBUPROFEN. [Suspect]
     Active Substance: IBUPROFEN
     Indication: MIGRAINE
     Route: 065

REACTIONS (5)
  - Insomnia [Unknown]
  - Therapy partial responder [Unknown]
  - Product use in unapproved indication [Unknown]
  - Drug abuse [Unknown]
  - Paraesthesia [Unknown]

NARRATIVE: CASE EVENT DATE: 200902
